FAERS Safety Report 6140163-3 (Version None)
Quarter: 2009Q1

REPORT INFORMATION
  Report Type: 
  Country: None (occurrence: None)
  Receive Date: 20090324
  Receipt Date: 20090313
  Transmission Date: 20090719
  Serious: Yes (Hospitalization)
  Sender: FDA-Public Use
  Company Number: 8042582

PATIENT
  Age: 23 Year
  Sex: Female
  Weight: 94 kg

DRUGS (8)
  1. KEPPRA [Suspect]
     Indication: EPILEPSY
     Dosage: 2000 MG /D IV
     Route: 042
     Dates: start: 20081213, end: 20081218
  2. PREDNISOLONE [Suspect]
     Indication: IMMUNOSUPPRESSION
     Dosage: 5 MG /D PO
     Route: 048
  3. PREDNISOLONE [Suspect]
     Indication: RENAL NEOPLASM
     Dosage: 5 MG /D PO
     Route: 048
  4. LAMICTAL [Suspect]
     Indication: EPILEPSY
     Dosage: 200 MG /D PO
     Route: 048
  5. TRILEPTAL [Suspect]
     Indication: EPILEPSY
     Dosage: 900 MG /D PO
     Route: 048
  6. RAPAMUNE [Suspect]
     Indication: IMMUNOSUPPRESSION
     Dosage: 1 MG /D PO
     Route: 048
  7. CELLCEPT [Suspect]
     Indication: IMMUNOSUPPRESSION
     Dosage: 25 MG /D PO
     Route: 048
  8. CELLCEPT [Suspect]
     Indication: RENAL NEOPLASM
     Dosage: 25 MG /D PO
     Route: 048

REACTIONS (1)
  - DRUG EFFECT DECREASED [None]
